FAERS Safety Report 15038139 (Version 1)
Quarter: 2018Q2

REPORT INFORMATION
  Report Type: Spontaneous
  Country: US (occurrence: US)
  Receive Date: 20180620
  Receipt Date: 20180620
  Transmission Date: 20180711
  Serious: Yes (Other)
  Sender: FDA-Public Use
  Company Number: US-NAPPMUNDI-GBR-2018-0056837

PATIENT
  Age: 39 Year
  Sex: Male

DRUGS (3)
  1. BACLOFEN. [Suspect]
     Active Substance: BACLOFEN
     Indication: PAIN
     Dosage: 447.4 MCG, DAILY (INTRATHECAL PUMP) AND 6 OPTIONAL DAILY BOLUS DOSES OF 1.8 MCG
     Route: 037
  2. BUPIVACAINE. [Suspect]
     Active Substance: BUPIVACAINE
     Indication: PAIN
     Dosage: 3.343 MG, DAILY (INTRATHECAL PUMP) AND 6 OPTIONAL DAILY BOLUS DOSES OF 0.013 MG
     Route: 037
  3. HYDROMORPHONE HYDROCHLORIDE. [Suspect]
     Active Substance: HYDROMORPHONE HYDROCHLORIDE
     Indication: PAIN
     Dosage: 24.506 MG, DAILY (INTRATHECAL PUMP) AND 6 OPTIONAL DAILY BOLUS DOSES OF 0.100 MG
     Route: 037

REACTIONS (6)
  - Muscular weakness [Unknown]
  - Arachnoiditis [Unknown]
  - Hypoaesthesia [Unknown]
  - Paraesthesia [Unknown]
  - Pain [Unknown]
  - Intentional overdose [Unknown]
